FAERS Safety Report 4949231-2 (Version None)
Quarter: 2006Q1

REPORT INFORMATION
  Report Type: 
  Country: None (occurrence: None)
  Receive Date: 20060316
  Receipt Date: 20060303
  Transmission Date: 20060701
  Serious: Yes (Hospitalization)
  Sender: FDA-Public Use
  Company Number: 2005108140

PATIENT
  Age: 58 Year
  Sex: Male
  Weight: 75.7507 kg

DRUGS (8)
  1. SUTENT [Suspect]
     Indication: METASTATIC RENAL CELL CARCINOMA
     Dosage: 50 MG (50 MG, QD 28 DAYS), ORAL
     Route: 048
     Dates: start: 20050531, end: 20050727
  2. IRON (IRON) [Concomitant]
  3. MULTIVITAMIN [Concomitant]
  4. ZOLOFT [Concomitant]
  5. PEPCID [Concomitant]
  6. VICODIN ES [Concomitant]
  7. PROCRIT [Concomitant]
  8. ZOMETA [Concomitant]

REACTIONS (17)
  - ACTIVATED PARTIAL THROMBOPLASTIN TIME PROLONGED [None]
  - ANAEMIA [None]
  - BILE DUCT OBSTRUCTION [None]
  - BLOOD CREATININE INCREASED [None]
  - CHOLELITHIASIS [None]
  - DILATATION ATRIAL [None]
  - EPISTAXIS [None]
  - HYPERBILIRUBINAEMIA [None]
  - HYPERTENSION [None]
  - IDIOPATHIC THROMBOCYTOPENIC PURPURA [None]
  - LYMPHOCYTE COUNT DECREASED [None]
  - MITRAL VALVE INCOMPETENCE [None]
  - NEUTROPHIL COUNT INCREASED [None]
  - PULMONARY ARTERIAL WEDGE PRESSURE INCREASED [None]
  - SUPRAVENTRICULAR TACHYCARDIA [None]
  - TRICUSPID VALVE INCOMPETENCE [None]
  - VENTRICULAR HYPERTROPHY [None]
